FAERS Safety Report 6456141-0 (Version None)
Quarter: 2009Q4

REPORT INFORMATION
  Report Type: 
  Country: None (occurrence: None)
  Receive Date: 20091125
  Receipt Date: 20091113
  Transmission Date: 20100525
  Serious: Yes (Other)
  Sender: FDA-Public Use
  Company Number: FR-MYLANLABS-2009S1019698

PATIENT
  Sex: Male

DRUGS (1)
  1. FLUOXETINE [Suspect]
     Indication: DRUG USE FOR UNKNOWN INDICATION
     Route: 048
     Dates: start: 20091112

REACTIONS (6)
  - DYSPHAGIA [None]
  - ENDOSCOPY [None]
  - FOREIGN BODY [None]
  - OEDEMA [None]
  - PURULENCE [None]
  - VOMITING [None]
